FAERS Safety Report 7438370-2 (Version None)
Quarter: 2011Q2

REPORT INFORMATION
  Report Type: 
  Country: None (occurrence: None)
  Receive Date: 20110426
  Receipt Date: 20110329
  Transmission Date: 20111010
  Serious: Yes (Hospitalization, Other)
  Sender: FDA-Public Use
  Company Number: US-BAYER-201021948NA

PATIENT
  Age: 47 Year
  Sex: Female
  Weight: 77.098 kg

DRUGS (5)
  1. LOVAZA [Concomitant]
     Indication: BLOOD TRIGLYCERIDES DECREASED
     Dosage: UNK
     Dates: start: 20080201, end: 20080801
  2. YASMIN [Suspect]
     Indication: OVARIAN CYST
  3. YASMIN [Suspect]
     Indication: CONTRACEPTION
     Dosage: UNK UNK, QD
     Route: 048
     Dates: start: 20080510, end: 20080602
  4. OCELLA [Suspect]
     Indication: OVARIAN CYST
  5. OCELLA [Suspect]
     Indication: CONTRACEPTION
     Dosage: UNK UNK, QD
     Route: 048
     Dates: start: 20080705, end: 20080801

REACTIONS (2)
  - DEPRESSION [None]
  - DEEP VEIN THROMBOSIS [None]
